FAERS Safety Report 11046511 (Version 1)
Quarter: 2015Q2

REPORT INFORMATION
  Report Type: Spontaneous
  Country: US (occurrence: US)
  Receive Date: 20150420
  Receipt Date: 20150420
  Transmission Date: 20150821
  Serious: No
  Sender: FDA-Public Use
  Company Number: US-TEVA-501399USA

PATIENT
  Age: 54 Year
  Sex: Male
  Weight: 98.06 kg

DRUGS (1)
  1. NICOTINIC ACID [Suspect]
     Active Substance: NIACIN

REACTIONS (10)
  - Medication residue present [Unknown]
  - Product taste abnormal [Unknown]
  - Foreign body [Unknown]
  - Throat irritation [Unknown]
  - Dyspepsia [Unknown]
  - Insomnia [Unknown]
  - Gastrointestinal pain [Unknown]
  - Mass [Unknown]
  - Gastric dilatation [Unknown]
  - Bowel movement irregularity [Unknown]
